FAERS Safety Report 19472323 (Version 1)
Quarter: 2021Q2

REPORT INFORMATION
  Report Type: Report from Study
  Country: FR (occurrence: FR)
  Receive Date: 20210629
  Receipt Date: 20210629
  Transmission Date: 20210717
  Serious: Yes (Other)
  Sender: FDA-Public Use
  Company Number: FR-ASTRAZENECA-2021A001979

PATIENT
  Age: 6392 Day
  Sex: Male
  Weight: 51.7 kg

DRUGS (1)
  1. SELUMETINIB. [Suspect]
     Active Substance: SELUMETINIB
     Indication: NEUROFIBROMATOSIS
     Route: 048
     Dates: start: 20201216

REACTIONS (7)
  - Abdominal pain upper [Recovering/Resolving]
  - Blood creatine phosphokinase increased [Recovered/Resolved]
  - Vision blurred [Recovered/Resolved]
  - Thrombocytopenia [Unknown]
  - Dermatitis acneiform [Recovered/Resolved]
  - Polycythaemia [Recovered/Resolved]
  - Aspartate aminotransferase increased [Recovered/Resolved]

NARRATIVE: CASE EVENT DATE: 20201226
